FAERS Safety Report 12590714 (Version 2)
Quarter: 2016Q3

REPORT INFORMATION
  Report Type: Spontaneous
  Country: US (occurrence: US)
  Receive Date: 20160726
  Receipt Date: 20160818
  Transmission Date: 20161109
  Serious: No
  Sender: FDA-Public Use
  Company Number: US-ASTRAZENECA-2016SE67740

PATIENT
  Sex: Female
  Weight: 106.6 kg

DRUGS (2)
  1. SYMBICORT [Suspect]
     Active Substance: BUDESONIDE\FORMOTEROL FUMARATE DIHYDRATE
     Indication: HYPERSENSITIVITY
     Dosage: 160/4.5 MCG ,120 INHALATIONS , 2 PUFFS, TWICE PER DAY
     Route: 055
  2. SYMBICORT [Suspect]
     Active Substance: BUDESONIDE\FORMOTEROL FUMARATE DIHYDRATE
     Indication: ASTHMA
     Dosage: 160/4.5 MCG ,120 INHALATIONS , 2 PUFFS, TWICE PER DAY
     Route: 055

REACTIONS (4)
  - Intentional device misuse [Unknown]
  - Migraine [Unknown]
  - Drug dose omission [Unknown]
  - Device malfunction [Unknown]
